FAERS Safety Report 9733742 (Version 2)
Quarter: 2014Q1

REPORT INFORMATION
  Report Type: Spontaneous
  Country: US (occurrence: US)
  Receive Date: 20131205
  Receipt Date: 20140211
  Transmission Date: 20141002
  Serious: Yes (Death)
  Sender: FDA-Public Use
  Company Number: US-CELGENEUS-163-21880-13115250

PATIENT
  Age: 67 Year
  Sex: Male

DRUGS (6)
  1. REVLIMID [Suspect]
     Indication: AMYLOIDOSIS
     Dosage: 15 MILLIGRAM
     Route: 048
     Dates: start: 200709, end: 201310
  2. DEXAMETHASONE [Concomitant]
     Indication: PRODUCT USED FOR UNKNOWN INDICATION
     Route: 048
     Dates: start: 20130913, end: 20131122
  3. EPOETIN [Concomitant]
     Indication: ANAEMIA
     Route: 058
     Dates: start: 20071214, end: 20130907
  4. FUROSEMIDE [Concomitant]
     Indication: OEDEMA
     Route: 048
     Dates: start: 20070321, end: 20131122
  5. POTASSIUM [Concomitant]
     Indication: HYPOKALAEMIA
     Route: 048
     Dates: start: 20071107, end: 20130525
  6. ATROPINE/DIPHENOXYLATE [Concomitant]
     Indication: DIARRHOEA
     Dosage: 0.025/2.5
     Route: 048
     Dates: start: 20080422, end: 20130531

REACTIONS (1)
  - Amyloidosis [Fatal]
